FAERS Safety Report 7707766-3 (Version None)
Quarter: 2011Q3

REPORT INFORMATION
  Report Type: 
  Country: None (occurrence: None)
  Receive Date: 20110824
  Receipt Date: 20110823
  Transmission Date: 20111222
  Serious: Yes (Disabling)
  Sender: FDA-Public Use
  Company Number: DK-BAYER-2011-076555

PATIENT
  Sex: Male

DRUGS (14)
  1. GADOLINIUM IN UNSPECIFIED DRUG [Suspect]
     Indication: NUCLEAR MAGNETIC RESONANCE IMAGING
     Dosage: UNK
     Dates: start: 20030627, end: 20030627
  2. SODIUM POLYSTYRENE SULFONATE [Concomitant]
  3. FUROSEMIDE [Concomitant]
     Dosage: 40 MG, UNK
     Route: 048
  4. ISRADIPINE [Concomitant]
  5. CAPOTEN [Concomitant]
  6. PLENDIL [Concomitant]
  7. PRAZAC [Concomitant]
  8. NEORECORMON [Concomitant]
  9. PANTOPRAZOLE SODIUM [Concomitant]
  10. PHOS-EX [Concomitant]
  11. RAMIPRIL [Concomitant]
  12. METOPROLOL SUCCINATE [Concomitant]
  13. MAGNYL [Concomitant]
  14. VITAMIN TAB [Concomitant]

REACTIONS (7)
  - JOINT STIFFNESS [None]
  - MOBILITY DECREASED [None]
  - ARTHRALGIA [None]
  - OEDEMA PERIPHERAL [None]
  - MYALGIA [None]
  - PAIN IN EXTREMITY [None]
  - NEPHROGENIC SYSTEMIC FIBROSIS [None]
